FAERS Safety Report 4599241-2 (Version None)
Quarter: 2005Q1

REPORT INFORMATION
  Report Type: 
  Country: None (occurrence: None)
  Receive Date: 20050302
  Receipt Date: 20050302
  Transmission Date: 20050727
  Serious: Yes (Other)
  Sender: FDA-Public Use
  Company Number: None

PATIENT
  Age: 58 Year
  Sex: Female
  Weight: 31.7518 kg

DRUGS (4)
  1. LEXAPRO [Suspect]
     Indication: DEPRESSION
     Dosage: 1 TAB QD
     Dates: start: 20040212
  2. LEXAPRO [Suspect]
     Indication: INSOMNIA
     Dosage: 1 TAB QD
     Dates: start: 20040212
  3. SYNTHROID [Concomitant]
  4. LIPITOR [Concomitant]

REACTIONS (2)
  - HALLUCINATION, VISUAL [None]
  - PHARMACEUTICAL PRODUCT COMPLAINT [None]
